FAERS Safety Report 7762414-1 (Version None)
Quarter: 2011Q3

REPORT INFORMATION
  Report Type: 
  Country: None (occurrence: None)
  Receive Date: 20110919
  Receipt Date: 20110919
  Transmission Date: 20111222
  Serious: Yes (Disabling)
  Sender: FDA-Public Use
  Company Number: None

PATIENT
  Age: 25 Year
  Sex: Male

DRUGS (5)
  1. OMEPRAZOLE [Concomitant]
  2. CLOZAPINE [Suspect]
     Indication: SCHIZOPHRENIA
     Dosage: DOSE TITRATED 575MG PO TO QHS
     Route: 048
     Dates: start: 20101111, end: 20110607
  3. OLANZAPINE [Suspect]
  4. VALPROIC ACID [Concomitant]
  5. LAMOTRIGINE [Concomitant]

REACTIONS (4)
  - CHEST PAIN [None]
  - CARDIOMEGALY [None]
  - LEFT ATRIAL HYPERTROPHY [None]
  - EJECTION FRACTION DECREASED [None]
